FAERS Safety Report 11624016 (Version 1)
Quarter: 2015Q4

REPORT INFORMATION
  Report Type: Spontaneous
  Country: US (occurrence: None)
  Receive Date: 20151009
  Receipt Date: 20151009
  Transmission Date: 20160304
  Serious: Yes (Hospitalization)
  Sender: FDA-Public Use
  Company Number: None

PATIENT
  Age: 47 Year
  Sex: Female
  Weight: 49.9 kg

DRUGS (2)
  1. HOMEPUMP ECLIPSE [Concomitant]
     Active Substance: DEVICE
  2. PRIMAXIN IV [Suspect]
     Active Substance: CILASTATIN SODIUM\IMIPENEM
     Dosage: PRIMAXIN 500 MG/0.9% SODIUM CHLORIDE 100 ML IV EVERY 8 HOURS OVER 30 MINUTES
     Route: 042

REACTIONS (1)
  - Device infusion issue [None]

NARRATIVE: CASE EVENT DATE: 20151002
